FAERS Safety Report 7040119-2 (Version None)
Quarter: 2010Q4

REPORT INFORMATION
  Report Type: 
  Country: None (occurrence: None)
  Receive Date: 20101012
  Receipt Date: 20101001
  Transmission Date: 20110411
  Serious: Yes (Other)
  Sender: FDA-Public Use
  Company Number: PHHY2010JP45521

PATIENT
  Age: 29 Year
  Sex: Female

DRUGS (4)
  1. TEGRETOL [Suspect]
     Indication: EPILEPSY
     Dosage: UNK
     Route: 048
  2. TEGRETOL [Suspect]
     Dosage: 0.32 G, QD
     Route: 048
     Dates: start: 20100625
  3. DEPAKENE [Concomitant]
     Indication: EPILEPSY
     Dosage: 1100 MG, UNK
     Route: 048
  4. LANDSEN [Concomitant]
     Indication: EPILEPSY
     Dosage: 0.5 G, UNK
     Route: 048

REACTIONS (4)
  - CAESAREAN SECTION [None]
  - CONVULSION [None]
  - DRUG EXPOSURE DURING PREGNANCY [None]
  - DRUG LEVEL DECREASED [None]
